FAERS Safety Report 20291186 (Version 1)
Quarter: 2022Q1

REPORT INFORMATION
  Report Type: Spontaneous
  Country: US (occurrence: US)
  Receive Date: 20220104
  Receipt Date: 20220104
  Transmission Date: 20220423
  Serious: No
  Sender: FDA-Public Use
  Company Number: US-TEVA-2021-US-1987284

PATIENT
  Age: 9 Year
  Sex: Male

DRUGS (1)
  1. CLONIDINE [Suspect]
     Active Substance: CLONIDINE
     Dosage: STRENGTH: 0.2 MG / DAY, SINCE 2 AND HALF MONTHS
     Route: 062
     Dates: start: 2021

REACTIONS (3)
  - Product adhesion issue [Unknown]
  - Drug withdrawal syndrome [Unknown]
  - Insomnia [Unknown]

NARRATIVE: CASE EVENT DATE: 20211201
